FAERS Safety Report 22063237 (Version 1)
Quarter: 2023Q1

REPORT INFORMATION
  Report Type: Other
  Country: US (occurrence: None)
  Receive Date: 20230306
  Receipt Date: 20230306
  Transmission Date: 20230417
  Serious: Yes (Other)
  Sender: FDA-Public Use
  Company Number: US-ROCHE-3292789

PATIENT
  Age: 44 Year
  Sex: Female
  Weight: 99.880 kg

DRUGS (12)
  1. OCREVUS [Suspect]
     Active Substance: OCRELIZUMAB
     Indication: Multiple sclerosis
     Route: 042
  2. AMPYRA [Concomitant]
     Active Substance: DALFAMPRIDINE
  3. BACLOFEN [Concomitant]
     Active Substance: BACLOFEN
  4. CLONAZEPAM [Concomitant]
     Active Substance: CLONAZEPAM
  5. DRONABINOL [Concomitant]
     Active Substance: DRONABINOL
  6. ACETAMINOPHEN\HYDROCODONE [Concomitant]
     Active Substance: ACETAMINOPHEN\HYDROCODONE
  7. KESIMPTA [Concomitant]
     Active Substance: OFATUMUMAB
  8. LEVOFLOXACIN [Concomitant]
     Active Substance: LEVOFLOXACIN
  9. LINZESS [Concomitant]
     Active Substance: LINACLOTIDE
  10. PAXLOVID [Concomitant]
     Active Substance: NIRMATRELVIR\RITONAVIR
  11. SIMVASTATIN [Concomitant]
     Active Substance: SIMVASTATIN
  12. TIZANIDINE [Concomitant]
     Active Substance: TIZANIDINE

REACTIONS (7)
  - Neurogenic bladder [Unknown]
  - Vitamin D deficiency [Unknown]
  - Muscle spasticity [Unknown]
  - Gait disturbance [Unknown]
  - Fall [Unknown]
  - COVID-19 [Unknown]
  - Muscular weakness [Unknown]

NARRATIVE: CASE EVENT DATE: 20181228
